FAERS Safety Report 5800236-9 (Version None)
Quarter: 2008Q3

REPORT INFORMATION
  Report Type: 
  Country: None (occurrence: None)
  Receive Date: 20080703
  Receipt Date: 20080623
  Transmission Date: 20090109
  Serious: Yes (Death, Hospitalization, Other)
  Sender: FDA-Public Use
  Company Number: ES-ELI_LILLY_AND_COMPANY-ES200806005232

PATIENT
  Age: 76 Year
  Sex: Female

DRUGS (9)
  1. FORTEO [Suspect]
     Indication: OSTEOPOROSIS
     Dosage: 20 UG, UNKNOWN
     Route: 058
     Dates: start: 20070423
  2. SINTROM [Concomitant]
     Dosage: UNK, UNKNOWN
     Route: 065
  3. DACORTIN [Concomitant]
     Dosage: UNK, UNKNOWN
     Route: 065
  4. DOBUPAL [Concomitant]
     Dosage: UNK, UNKNOWN
     Route: 065
  5. DIGOXIN [Concomitant]
     Dosage: UNK, UNKNOWN
     Route: 065
  6. VASTAT FLAS [Concomitant]
     Dosage: UNK, UNKNOWN
     Route: 065
  7. ALDACTONE [Concomitant]
     Dosage: UNK, UNKNOWN
     Route: 065
  8. DIGARIL [Concomitant]
     Dosage: UNK, UNKNOWN
     Route: 065
  9. HIDROFEROL [Concomitant]
     Dosage: UNK, UNKNOWN
     Route: 065

REACTIONS (3)
  - BLOOD URINE PRESENT [None]
  - CARDIAC FAILURE [None]
  - CARDIAC VALVE DISEASE [None]
